FAERS Safety Report 4790400-2 (Version None)
Quarter: 2005Q4

REPORT INFORMATION
  Report Type: 
  Country: None (occurrence: None)
  Receive Date: 20051006
  Receipt Date: 20050926
  Transmission Date: 20060501
  Serious: Yes (Other)
  Sender: FDA-Public Use
  Company Number: US-SANOFI-SYNTHELABO-A03200503060

PATIENT
  Sex: Male

DRUGS (2)
  1. UROXATRAL [Suspect]
     Indication: DRUG USE FOR UNKNOWN INDICATION
     Dosage: UNK
     Route: 048
     Dates: start: 20050914
  2. KEPPRA [Concomitant]
     Route: 048
     Dates: start: 20041101

REACTIONS (1)
  - CONVULSION [None]
